FAERS Safety Report 5098690-6 (Version None)
Quarter: 2006Q3

REPORT INFORMATION
  Report Type: 
  Country: None (occurrence: None)
  Receive Date: 20060905
  Receipt Date: 20060822
  Transmission Date: 20061208
  Serious: Yes (Death, Hospitalization)
  Sender: FDA-Public Use
  Company Number: 226661

PATIENT
  Age: 58 Year
  Sex: Female

DRUGS (5)
  1. RITUXAN [Suspect]
     Indication: RHEUMATOID ARTHRITIS
     Dosage: 1000 MG, SINGLE, IV DRIP
     Route: 041
     Dates: start: 20060605
  2. DMARD DRUG (ANTIRHEUMATIC + ANTI-INFLAMMATORY AGENTS) [Concomitant]
  3. ARAVA [Concomitant]
  4. DILTIAZEM HCL [Concomitant]
  5. HYDROCHLOROTHIAZIDE [Concomitant]

REACTIONS (28)
  - ACUTE RESPIRATORY DISTRESS SYNDROME [None]
  - ACUTE RESPIRATORY FAILURE [None]
  - ASTHENIA [None]
  - BLOOD POTASSIUM DECREASED [None]
  - BLOOD SODIUM DECREASED [None]
  - CARDIOMEGALY [None]
  - CEREBELLAR INFARCTION [None]
  - CEREBRAL INFARCTION [None]
  - COAGULOPATHY [None]
  - DEHYDRATION [None]
  - DIALYSIS [None]
  - DIFFUSE ALVEOLAR DAMAGE [None]
  - DISSEMINATED INTRAVASCULAR COAGULATION [None]
  - FEELING COLD [None]
  - HYPOAESTHESIA [None]
  - HYPOTENSION [None]
  - INFLUENZA LIKE ILLNESS [None]
  - LOSS OF CONSCIOUSNESS [None]
  - MARROW HYPERPLASIA [None]
  - MULTI-ORGAN FAILURE [None]
  - NAUSEA [None]
  - NERVOUS SYSTEM DISORDER [None]
  - PNEUMONITIS [None]
  - PULMONARY ALVEOLAR HAEMORRHAGE [None]
  - RENAL FAILURE ACUTE [None]
  - RESPIRATORY TRACT INFECTION [None]
  - SPLENIC INFARCTION [None]
  - VENTRICULAR HYPERTROPHY [None]
